FAERS Safety Report 7905848-4 (Version None)
Quarter: 2011Q4

REPORT INFORMATION
  Report Type: 
  Country: None (occurrence: None)
  Receive Date: 20111110
  Receipt Date: 20111031
  Transmission Date: 20120403
  Serious: Yes (Other)
  Sender: FDA-Public Use
  Company Number: CA-UCBSA-036439

PATIENT
  Age: 47 Year
  Sex: Female
  Weight: 79.09 kg

DRUGS (9)
  1. ZOVIRAX [Concomitant]
     Indication: ORAL HERPES
  2. CIMZIA [Suspect]
     Indication: RHEUMATOID ARTHRITIS
     Dosage: 200MG EVERY 2 WEEKS
     Route: 058
     Dates: start: 20090601
  3. NASONEX [Concomitant]
     Indication: SINUS DISORDER
  4. NAPROXEN [Concomitant]
     Indication: RHEUMATOID ARTHRITIS
     Route: 048
     Dates: start: 20070101
  5. CELEBREX [Concomitant]
     Indication: RHEUMATOID ARTHRITIS
     Route: 048
     Dates: start: 20110101
  6. NAPROXEN [Concomitant]
     Indication: PAIN
     Route: 048
     Dates: start: 20070101
  7. METHOTREXATE [Concomitant]
     Indication: RHEUMATOID ARTHRITIS
     Route: 048
     Dates: start: 20060101
  8. FOLIC ACID [Concomitant]
     Indication: VITAMIN SUPPLEMENTATION
  9. MOMETASONE FUROATE [Concomitant]
     Indication: ECZEMA

REACTIONS (3)
  - CARDIAC MURMUR [None]
  - BONE PAIN [None]
  - ARTHRALGIA [None]
